FAERS Safety Report 6554209-1 (Version None)
Quarter: 2010Q1

REPORT INFORMATION
  Report Type: 
  Country: None (occurrence: None)
  Receive Date: 20100125
  Receipt Date: 20100125
  Transmission Date: 20100710
  Serious: Yes (Hospitalization)
  Sender: FDA-Public Use
  Company Number: None

PATIENT
  Sex: Male
  Weight: 2.4585 kg

DRUGS (2)
  1. SYNAGIS [Suspect]
     Indication: HEART DISEASE CONGENITAL
     Dosage: IM
     Route: 030
     Dates: start: 20100111, end: 20100111
  2. SYNAGIS [Suspect]
     Indication: PREMATURE BABY
     Dosage: IM
     Route: 030
     Dates: start: 20100111, end: 20100111

REACTIONS (4)
  - COUGH [None]
  - CYANOSIS [None]
  - EATING DISORDER [None]
  - RESPIRATORY ARREST [None]
